FAERS Safety Report 8836531 (Version 2)
Quarter: 2012Q4

REPORT INFORMATION
  Report Type: Spontaneous
  Country: US (occurrence: None)
  Receive Date: 20121009
  Receipt Date: 20121012
  Transmission Date: 20130627
  Serious: Yes (Hospitalization)
  Sender: FDA-Public Use
  Company Number: 2012AP003253

PATIENT
  Age: 50 Year
  Sex: Female

DRUGS (6)
  1. HYDROCHLOROTHIAZIDE [Suspect]
     Indication: HYPERTENSION
  2. LIQUORICE [Suspect]
  3. SERTRALINE [Concomitant]
  4. QUETIAPINE [Concomitant]
  5. CALCIUM [Concomitant]
  6. VITAMIN D NOS [Concomitant]

REACTIONS (7)
  - Rhabdomyolysis [None]
  - Hypocalcaemia [None]
  - Hypokalaemia [None]
  - Hypophosphataemia [None]
  - Hyperparathyroidism [None]
  - Gait disturbance [None]
  - Blood pressure increased [None]
